FAERS Safety Report 11656079 (Version 1)
Quarter: 2015Q4

REPORT INFORMATION
  Report Type: Spontaneous
  Country: US (occurrence: US)
  Receive Date: 20151023
  Receipt Date: 20151023
  Transmission Date: 20160304
  Serious: Yes (Other)
  Sender: FDA-Public Use
  Company Number: US-009507513-1510USA007124

PATIENT
  Age: 53 Year
  Sex: Female

DRUGS (6)
  1. LEVOTHYROXINE SODIUM. [Concomitant]
     Active Substance: LEVOTHYROXINE SODIUM
     Dosage: UNK
  2. METFORMIN [Concomitant]
     Active Substance: METFORMIN HYDROCHLORIDE
     Dosage: UNK
  3. AMIODARONE [Concomitant]
     Active Substance: AMIODARONE
     Dosage: UNK
  4. PRINIVIL [Suspect]
     Active Substance: LISINOPRIL
     Indication: BLOOD PRESSURE MANAGEMENT
     Dosage: UNK
     Route: 048
     Dates: start: 201412, end: 20150727
  5. LISINOPRIL. [Suspect]
     Active Substance: LISINOPRIL
     Indication: BLOOD PRESSURE MANAGEMENT
     Dosage: UNK
     Dates: start: 201412, end: 20150727
  6. ASPIRIN. [Concomitant]
     Active Substance: ASPIRIN
     Dosage: UNK

REACTIONS (8)
  - Intestinal angioedema [Unknown]
  - Urticaria [Unknown]
  - Pharyngeal oedema [Unknown]
  - Hysterectomy [Unknown]
  - Urticaria [Unknown]
  - Angioedema [Recovering/Resolving]
  - Urticaria [Recovering/Resolving]
  - Cardiac flutter [Unknown]

NARRATIVE: CASE EVENT DATE: 201412
